FAERS Safety Report 9382944 (Version 1)
Quarter: 2013Q3

REPORT INFORMATION
  Report Type: Spontaneous
  Country: BR (occurrence: BR)
  Receive Date: 20130703
  Receipt Date: 20130703
  Transmission Date: 20140515
  Serious: Yes (Other)
  Sender: FDA-Public Use
  Company Number: BR-009507513-1306BRA014676

PATIENT
  Age: 34 Year
  Sex: Female
  Weight: 55 kg

DRUGS (1)
  1. DECA-DURABOLIN [Suspect]
     Indication: MUSCLE MASS
     Dosage: 50 MG, UNK
     Route: 030
     Dates: start: 20130621, end: 20130621

REACTIONS (8)
  - Convulsion [Recovered/Resolved]
  - Influenza [Recovering/Resolving]
  - Cough [Recovering/Resolving]
  - Pain [Recovering/Resolving]
  - Arthralgia [Recovering/Resolving]
  - Dyspnoea [Recovering/Resolving]
  - Sinusitis [Unknown]
  - Off label use [Unknown]
